FAERS Safety Report 4914082-1 (Version None)
Quarter: 2006Q1

REPORT INFORMATION
  Report Type: 
  Country: None (occurrence: None)
  Receive Date: 20060113
  Receipt Date: 20051116
  Transmission Date: 20060701
  Serious: No
  Sender: FDA-Public Use
  Company Number: 2005SP004030

PATIENT
  Sex: Female

DRUGS (6)
  1. LUNESTA [Suspect]
     Indication: INSOMNIA
     Dosage: 2 MG, HS, ORAL
     Route: 048
     Dates: start: 20051101
  2. ATENOLOL [Concomitant]
  3. AMLODIPINE [Concomitant]
  4. PAXIL [Concomitant]
  5. BENEFIBER [Concomitant]
  6. LORAZEPAM [Concomitant]

REACTIONS (1)
  - CONSTIPATION [None]
